FAERS Safety Report 17314163 (Version 1)
Quarter: 2020Q1

REPORT INFORMATION
  Report Type: Spontaneous
  Country: US (occurrence: US)
  Receive Date: 20200124
  Receipt Date: 20200124
  Transmission Date: 20200409
  Serious: No
  Sender: FDA-Public Use
  Company Number: US-ASTRAZENECA-2020SE08565

PATIENT
  Age: 1 Year
  Sex: Male
  Weight: 8.4 kg

DRUGS (10)
  1. SYNAGIS [Suspect]
     Active Substance: PALIVIZUMAB
     Indication: BRONCHOPULMONARY DYSPLASIA
     Route: 030
  2. IRON SUPPLEMENT CHILDRENS [Concomitant]
  3. SPIRONOLACTONE. [Concomitant]
     Active Substance: SPIRONOLACTONE
  4. PEPCID [Concomitant]
     Active Substance: FAMOTIDINE
  5. ATROVENT HFA [Concomitant]
     Active Substance: IPRATROPIUM BROMIDE
  6. TRACLEER [Concomitant]
     Active Substance: BOSENTAN
  7. ALBUTEROL. [Concomitant]
     Active Substance: ALBUTEROL
  8. SYNAGIS [Suspect]
     Active Substance: PALIVIZUMAB
     Indication: SMALL FOR DATES BABY
     Route: 030
  9. FLOVENT [Concomitant]
     Active Substance: FLUTICASONE PROPIONATE
  10. FUROSEMIDE. [Concomitant]
     Active Substance: FUROSEMIDE

REACTIONS (1)
  - Weight decreased [Unknown]
